FAERS Safety Report 5213442-1 (Version None)
Quarter: 2007Q1

REPORT INFORMATION
  Report Type: 
  Country: None (occurrence: None)
  Receive Date: 20070116
  Receipt Date: 20070105
  Transmission Date: 20070707
  Serious: Yes (Death, Hospitalization)
  Sender: FDA-Public Use
  Company Number: HQWYE620305JAN07

PATIENT
  Age: 91 Year
  Sex: Female

DRUGS (8)
  1. CORDARONE [Suspect]
     Indication: ATRIAL FIBRILLATION
     Dosage: 200 MG 1X PER 1 DAY
     Route: 048
  2. CORDARONE [Suspect]
     Indication: ATRIAL FLUTTER
     Dosage: 200 MG 1X PER 1 DAY
     Route: 048
  3. PERINDOPRIL ERBUMINE [Suspect]
     Indication: ESSENTIAL HYPERTENSION
     Route: 048
     Dates: end: 20061018
  4. LASIX [Suspect]
     Dosage: 40 MG 1X PER 1 DAY
     Route: 048
     Dates: end: 20061018
  5. VOLTAREN [Suspect]
     Indication: RHEUMATOID ARTHRITIS
     Dosage: 75 MG 1X PER 1 DAY
     Route: 048
     Dates: end: 20061018
  6. STABLON (TIANEPTINE) [Concomitant]
  7. DEPAKENE [Concomitant]
  8. AMLODIPINE BESYLATE [Concomitant]

REACTIONS (10)
  - ATRIOVENTRICULAR BLOCK COMPLETE [None]
  - BEDRIDDEN [None]
  - CACHEXIA [None]
  - DECUBITUS ULCER [None]
  - HYPERKALAEMIA [None]
  - HYPERTHYROIDISM [None]
  - HYPOXIA [None]
  - LUNG INFECTION [None]
  - RENAL FAILURE [None]
  - RIGHT VENTRICULAR FAILURE [None]
